FAERS Safety Report 7368978-4 (Version None)
Quarter: 2011Q1

REPORT INFORMATION
  Report Type: 
  Country: None (occurrence: None)
  Receive Date: 20110323
  Receipt Date: 20100927
  Transmission Date: 20110831
  Serious: Yes (Other)
  Sender: FDA-Public Use
  Company Number: US-BAYER-201027896NA

PATIENT
  Sex: Female
  Weight: 76.19 kg

DRUGS (8)
  1. ACETAMINOPHEN AND HYDROCODONE BITARTRATE [Concomitant]
     Dosage: UNK
     Dates: start: 20070925
  2. ERGOTAMIN-COFFEIN [Concomitant]
     Dosage: UNK
     Dates: start: 20071017
  3. VERAPAMIL [Concomitant]
     Dosage: 40 MG, UNK
     Dates: start: 20071017
  4. YAZ [Suspect]
     Indication: CONTRACEPTION
     Route: 048
     Dates: start: 20070901, end: 20080621
  5. NAPROXEN [Concomitant]
     Dosage: UNK
     Dates: start: 20070501, end: 20080601
  6. ZYRTEC-D 12 HOUR [Concomitant]
     Dosage: UNK
     Dates: start: 20071004
  7. RELPAX [Concomitant]
     Dosage: 40 MG, UNK
     Dates: start: 20071004
  8. UNCODEABLE ^UNCLASSIFIABLE^ [Concomitant]
     Dosage: 15 ML, UNK
     Dates: start: 20070930

REACTIONS (5)
  - ABDOMINAL PAIN UPPER [None]
  - BILIARY DYSKINESIA [None]
  - GALLBLADDER CHOLESTEROLOSIS [None]
  - GALLBLADDER DISORDER [None]
  - CHOLECYSTITIS CHRONIC [None]
